FAERS Safety Report 13155212 (Version 1)
Quarter: 2017Q1

REPORT INFORMATION
  Report Type: Spontaneous
  Country: US (occurrence: US)
  Receive Date: 20170126
  Receipt Date: 20170126
  Transmission Date: 20170428
  Serious: Yes (Other)
  Sender: FDA-Public Use
  Company Number: US-BRACCO-014065

PATIENT
  Age: 82 Year
  Sex: Female

DRUGS (1)
  1. BARIUM [Suspect]
     Active Substance: BARIUM
     Indication: BARIUM ENEMA
     Route: 054

REACTIONS (2)
  - Granuloma [Unknown]
  - Intestinal perforation [Unknown]
